FAERS Safety Report 11856419 (Version 1)
Quarter: 2015Q4

REPORT INFORMATION
  Report Type: Spontaneous
  Country: GB (occurrence: GB)
  Receive Date: 20151221
  Receipt Date: 20151221
  Transmission Date: 20160305
  Serious: Yes (Life-Threatening, Disabling)
  Sender: FDA-Public Use
  Company Number: GB-TEVA-617940ACC

PATIENT
  Age: 18 Year
  Sex: Female
  Weight: 71 kg

DRUGS (9)
  1. OLOPATADINE [Concomitant]
     Active Substance: OLOPATADINE
     Dosage: 2 GTT DAILY; BOTH EYES
     Route: 050
     Dates: start: 20150219, end: 20150926
  2. PRO D3 [Concomitant]
     Dosage: 3 ML DAILY; 6000 UNITS (3ML) DAILY
     Dates: start: 20150527
  3. AMLODIPINE [Concomitant]
     Active Substance: AMLODIPINE BESYLATE
     Dosage: 1 DOSAGE FORMS DAILY;
     Dates: start: 20150219
  4. OMEPRAZOLE. [Concomitant]
     Active Substance: OMEPRAZOLE
     Dosage: ONE DAILY, IF REQUIRED.
     Dates: start: 20150219, end: 20150926
  5. RAMIPRIL. [Concomitant]
     Active Substance: RAMIPRIL
     Dosage: 1 DOSAGE FORMS DAILY;
     Dates: start: 20150219
  6. LEVETIRACETAM. [Suspect]
     Active Substance: LEVETIRACETAM
     Dates: start: 20151104
  7. CODEINE PHOSPHATE [Concomitant]
     Active Substance: CODEINE PHOSPHATE
     Dosage: TWICE A DAY, AS NECESSARY.
     Dates: start: 20150219
  8. VITA-POS [Concomitant]
     Dosage: APPLY TO BOTH EYES
     Dates: start: 20150219, end: 20150926
  9. LEVOTHYROXINE. [Concomitant]
     Active Substance: LEVOTHYROXINE
     Dosage: 1 DOSAGE FORMS DAILY; IN THE MORNING; 1 DOSAGE FORM
     Dates: start: 20150219

REACTIONS (2)
  - Thinking abnormal [Not Recovered/Not Resolved]
  - Suicidal ideation [Not Recovered/Not Resolved]

NARRATIVE: CASE EVENT DATE: 20151203
